FAERS Safety Report 13371209 (Version 1)
Quarter: 2017Q1

REPORT INFORMATION
  Report Type: Spontaneous
  Country: US (occurrence: US)
  Receive Date: 20170324
  Receipt Date: 20170324
  Transmission Date: 20170429
  Serious: Yes (Other)
  Sender: FDA-Public Use
  Company Number: US-TEVA-751773USA

PATIENT
  Age: 42 Year
  Sex: Male

DRUGS (1)
  1. COPAXONE [Suspect]
     Active Substance: GLATIRAMER ACETATE
     Indication: MULTIPLE SCLEROSIS
     Dosage: 1.9048 MILLIGRAM DAILY;
     Dates: start: 2014

REACTIONS (3)
  - Pneumothorax [Unknown]
  - Road traffic accident [Unknown]
  - Rib fracture [Unknown]
